FAERS Safety Report 17257847 (Version 3)
Quarter: 2020Q1

REPORT INFORMATION
  Report Type: Spontaneous
  Country: US (occurrence: US)
  Receive Date: 20200110
  Receipt Date: 20200326
  Transmission Date: 20200409
  Serious: No
  Sender: FDA-Public Use
  Company Number: US-BEH-2019111082

PATIENT
  Age: 61 Year
  Sex: Female

DRUGS (1)
  1. HIZENTRA [Suspect]
     Active Substance: HUMAN IMMUNOGLOBULIN G
     Indication: IMMUNODEFICIENCY COMMON VARIABLE
     Dosage: 12 GRAM, QW
     Route: 058
     Dates: start: 201905

REACTIONS (4)
  - Headache [Unknown]
  - Sinusitis [Unknown]
  - Nasopharyngitis [Unknown]
  - Nasal discharge discolouration [Unknown]

NARRATIVE: CASE EVENT DATE: 201912
